FAERS Safety Report 6677718-3 (Version None)
Quarter: 2010Q2

REPORT INFORMATION
  Report Type: 
  Country: None (occurrence: None)
  Receive Date: 20100412
  Receipt Date: 20100224
  Transmission Date: 20101027
  Serious: Yes (Life-Threatening, Other)
  Sender: FDA-Public Use
  Company Number: GB-ALEXION-A200800201

PATIENT

DRUGS (4)
  1. SOLIRIS [Suspect]
     Indication: PAROXYSMAL NOCTURNAL HAEMOGLOBINURIA
     Dates: start: 20051010, end: 20071015
  2. SOLIRIS [Suspect]
     Dosage: UNK, SINGLE
     Route: 042
     Dates: start: 20080711, end: 20080711
  3. SOLIRIS [Suspect]
     Dosage: 900 MG, SINGLE
     Route: 042
  4. SOLIRIS [Suspect]
     Dosage: 900 MG, NORMAL MAINTENANCE DOSING

REACTIONS (5)
  - DRUG EXPOSURE DURING PREGNANCY [None]
  - HAEMOLYSIS [None]
  - PORTAL VEIN THROMBOSIS [None]
  - RETAINED PLACENTA OR MEMBRANES [None]
  - UTERINE HAEMORRHAGE [None]
